FAERS Safety Report 23535011 (Version 1)
Quarter: 2024Q1

REPORT INFORMATION
  Report Type: Spontaneous
  Country: CH (occurrence: CH)
  Receive Date: 20240217
  Receipt Date: 20240217
  Transmission Date: 20240410
  Serious: Yes (Death, Hospitalization, Other)
  Sender: FDA-Public Use
  Company Number: CH-NOVITIUMPHARMA-2024CHNVP00136

PATIENT
  Age: 78 Year
  Sex: Male

DRUGS (3)
  1. PREDNISONE [Suspect]
     Active Substance: PREDNISONE
     Indication: Immunosuppression
  2. MYCOPHENOLATE MOFETIL [Concomitant]
     Active Substance: MYCOPHENOLATE MOFETIL
     Indication: Immunosuppression
  3. TACROLIMUS [Concomitant]
     Active Substance: TACROLIMUS
     Indication: Immunosuppression

REACTIONS (6)
  - Human polyomavirus infection [Fatal]
  - Progressive multifocal leukoencephalopathy [Fatal]
  - Agranulocytosis [Unknown]
  - Pleural effusion [Unknown]
  - Intestinal ischaemia [Unknown]
  - Lymphopenia [Recovering/Resolving]
